FAERS Safety Report 9990119 (Version 3)
Quarter: 2014Q1

REPORT INFORMATION
  Report Type: Report from Study
  Country: JP (occurrence: JP)
  Receive Date: 20140310
  Receipt Date: 20140327
  Transmission Date: 20141002
  Serious: Yes (Hospitalization)
  Sender: FDA-Public Use
  Company Number: JP-B.I. PHARMACEUTICALS,INC./RIDGEFIELD-2014-BI-02472NB

PATIENT
  Age: 74 Year
  Sex: Male
  Weight: 54.4 kg

DRUGS (4)
  1. PRAZAXA [Suspect]
     Indication: CEREBROVASCULAR ACCIDENT PROPHYLAXIS
     Dosage: 220 MG
     Route: 048
     Dates: start: 20130828, end: 20131024
  2. ARICEPT (DONEPEZIL HYDROCHLORIDE) [Concomitant]
     Dosage: 5 MG
     Route: 048
  3. COLONEL (POLYCARBOPHIL CALCIUM) [Concomitant]
     Dosage: 1500 MG
     Route: 048
  4. WARFARIN (WARFARIN POTASSIUM) [Concomitant]
     Dosage: 2.5 MG
     Route: 065
     Dates: start: 20090128

REACTIONS (2)
  - Cerebral infarction [Unknown]
  - Activated partial thromboplastin time prolonged [Unknown]
